FAERS Safety Report 19420327 (Version 1)
Quarter: 2021Q2

REPORT INFORMATION
  Report Type: Report from Study
  Country: FR (occurrence: FR)
  Receive Date: 20210615
  Receipt Date: 20210615
  Transmission Date: 20210717
  Serious: Yes (Hospitalization)
  Sender: FDA-Public Use
  Company Number: PHHO2019FR007416

PATIENT
  Age: 77 Year
  Sex: Male
  Weight: 69.6 kg

DRUGS (10)
  1. INC280 [Suspect]
     Active Substance: CAPMATINIB
     Indication: METASTATIC MALIGNANT MELANOMA
     Dosage: UNK
     Route: 048
     Dates: start: 20190531, end: 20190712
  2. ASPIRIN. [Concomitant]
     Active Substance: ASPIRIN
     Indication: MYOCARDIAL ISCHAEMIA
     Dosage: UNK
     Route: 065
     Dates: start: 19980101
  3. GLYCEROL [Concomitant]
     Active Substance: GLYCERIN
     Indication: TOXIC SKIN ERUPTION
     Dosage: UNK
     Route: 065
     Dates: start: 20190629, end: 20190705
  4. PDR001 [Suspect]
     Active Substance: SPARTALIZUMAB
     Indication: METASTATIC MALIGNANT MELANOMA
     Dosage: 400 MG, QMO
     Route: 042
     Dates: start: 20190531
  5. LEXOMIL [Concomitant]
     Active Substance: BROMAZEPAM
     Indication: MYOCARDIAL ISCHAEMIA
     Dosage: UNK
     Route: 065
     Dates: start: 19980101
  6. GLYCEROL [Concomitant]
     Active Substance: GLYCERIN
     Indication: PRURITUS
  7. TAHOR [Concomitant]
     Active Substance: ATORVASTATIN CALCIUM
     Indication: MYOCARDIAL ISCHAEMIA
     Dosage: UNK
     Route: 065
     Dates: start: 19980101
  8. CELECTOL [Concomitant]
     Active Substance: CELIPROLOL HYDROCHLORIDE
     Indication: MYOCARDIAL ISCHAEMIA
     Dosage: UNK
     Route: 065
     Dates: start: 19980101
  9. DIPROSONE [Concomitant]
     Active Substance: BETAMETHASONE DIPROPIONATE
     Indication: TOXIC SKIN ERUPTION
     Dosage: UNK
     Route: 065
     Dates: start: 20190629, end: 20190705
  10. DIPROSONE [Concomitant]
     Active Substance: BETAMETHASONE DIPROPIONATE
     Indication: PRURITUS

REACTIONS (1)
  - Hepatic cytolysis [Recovered/Resolved]

NARRATIVE: CASE EVENT DATE: 20190712
